FAERS Safety Report 8374409-8 (Version None)
Quarter: 2012Q2

REPORT INFORMATION
  Report Type: 
  Country: None (occurrence: None)
  Receive Date: 20120521
  Receipt Date: 20120511
  Transmission Date: 20120825
  Serious: Yes (Other)
  Sender: FDA-Public Use
  Company Number: JP-VERTEX PHARMACEUTICALS INC.-AE-2012-006213

PATIENT
  Age: 65 Year
  Sex: Male

DRUGS (12)
  1. REBETOL [Concomitant]
     Route: 048
     Dates: start: 20120405
  2. TELAVIC (TELAPREVIR) [Suspect]
     Indication: HEPATITIS C
     Route: 048
     Dates: start: 20120216, end: 20120426
  3. REBETOL [Concomitant]
     Route: 048
     Dates: start: 20120316, end: 20120404
  4. LENDORMIN [Concomitant]
     Route: 048
     Dates: start: 20120218, end: 20120308
  5. GLIMEPIRIDE [Concomitant]
     Route: 048
  6. LANSOPRAZOLE [Concomitant]
     Route: 048
     Dates: start: 20120220, end: 20120308
  7. BISOPROLOL FUMARATE [Concomitant]
     Route: 048
  8. PEG-INTRON [Concomitant]
     Indication: HEPATITIS C
     Route: 051
     Dates: start: 20120216
  9. PREDNISOLONE [Concomitant]
     Route: 048
     Dates: start: 20120221, end: 20120226
  10. MEIBIS [Concomitant]
     Route: 048
  11. REBETOL [Concomitant]
     Indication: HEPATITIS C
     Route: 048
     Dates: start: 20120216, end: 20120315
  12. AMLODIPINE BESYLATE [Concomitant]
     Route: 048

REACTIONS (2)
  - DRUG ERUPTION [None]
  - SKIN DISORDER [None]
